FAERS Safety Report 17852581 (Version 1)
Quarter: 2020Q2

REPORT INFORMATION
  Report Type: Other
  Country: CN (occurrence: CN)
  Receive Date: 20200602
  Receipt Date: 20200602
  Transmission Date: 20200714
  Serious: Yes (Other)
  Sender: FDA-Public Use
  Company Number: CN-GE HEALTHCARE LIFE SCIENCES-2020CSU002243

PATIENT

DRUGS (4)
  1. TIROFIBAN HYDROCHLORIDE. [Suspect]
     Active Substance: TIROFIBAN HYDROCHLORIDE
     Indication: ANTICOAGULANT THERAPY
     Dosage: 12.5 MG
     Route: 041
     Dates: start: 20200520, end: 20200520
  2. BAYASPIRIN [Suspect]
     Active Substance: ASPIRIN
     Indication: ANTIPLATELET THERAPY
     Dosage: 0.1 GM
     Route: 048
     Dates: start: 20200518, end: 20200518
  3. VISIPAQUE [Suspect]
     Active Substance: IODIXANOL
     Indication: ANGIOGRAM
     Dosage: 32 GM, SINGLE
     Route: 013
     Dates: start: 20200520, end: 20200520
  4. VISIPAQUE [Suspect]
     Active Substance: IODIXANOL
     Indication: ARTERIOSCLEROSIS CORONARY ARTERY

REACTIONS (5)
  - Gastric haemorrhage [Recovered/Resolved]
  - Headache [Recovered/Resolved]
  - Vomiting [Recovered/Resolved]
  - Rash [Recovered/Resolved]
  - Nausea [Recovered/Resolved]

NARRATIVE: CASE EVENT DATE: 20200520
